FAERS Safety Report 10253381 (Version 1)
Quarter: 2014Q2

REPORT INFORMATION
  Report Type: Spontaneous
  Country: US (occurrence: US)
  Receive Date: 20140623
  Receipt Date: 20140623
  Transmission Date: 20141212
  Serious: Yes (Death)
  Sender: FDA-Public Use
  Company Number: US-JNJFOC-20140615229

PATIENT
  Sex: 0

DRUGS (9)
  1. DOXORUBICIN HYDROCHLORIDE [Suspect]
     Indication: PLASMABLASTIC LYMPHOMA
     Route: 042
  2. METHOTREXATE [Suspect]
     Indication: PLASMABLASTIC LYMPHOMA
     Route: 065
  3. AZIDOTHYMIDINE [Suspect]
     Indication: PLASMABLASTIC LYMPHOMA
     Route: 065
  4. CYCLOPHOSPHAMIDE [Suspect]
     Indication: PLASMABLASTIC LYMPHOMA
     Route: 065
  5. VINCRISTINE [Suspect]
     Indication: PLASMABLASTIC LYMPHOMA
     Route: 065
  6. PREDNISONE [Suspect]
     Indication: PLASMABLASTIC LYMPHOMA
     Route: 065
  7. DEXAMETHASONE [Suspect]
     Indication: PLASMABLASTIC LYMPHOMA
     Route: 065
  8. ETOPOSIDE [Suspect]
     Indication: PLASMABLASTIC LYMPHOMA
     Route: 065
  9. BLEOMYCIN [Suspect]
     Indication: PLASMABLASTIC LYMPHOMA
     Route: 065

REACTIONS (1)
  - Toxicity to various agents [Fatal]
